FAERS Safety Report 5086918-8 (Version None)
Quarter: 2006Q3

REPORT INFORMATION
  Report Type: 
  Country: None (occurrence: None)
  Receive Date: 20060818
  Receipt Date: 20060808
  Transmission Date: 20061208
  Serious: Yes (Other)
  Sender: FDA-Public Use
  Company Number: 2006087253

PATIENT
  Sex: Male
  Weight: 77.1115 kg

DRUGS (3)
  1. SOMAVERT [Suspect]
     Indication: ACROMEGALY
     Dosage: 25 MG (25 MG, 1 IN 1 D)
     Dates: start: 20040901, end: 20050101
  2. STRATTERA [Concomitant]
  3. CORTEF [Concomitant]

REACTIONS (1)
  - PITUITARY TUMOUR RECURRENT [None]
